FAERS Safety Report 5074217-X (Version None)
Quarter: 2006Q3

REPORT INFORMATION
  Report Type: 
  Country: None (occurrence: None)
  Receive Date: 20060803
  Receipt Date: 20060725
  Transmission Date: 20061208
  Serious: Yes (Hospitalization, Other)
  Sender: FDA-Public Use
  Company Number: 2006-03-1330

PATIENT
  Age: 41 Year
  Sex: Male
  Weight: 55 kg

DRUGS (4)
  1. PEG-INTRON [Suspect]
     Indication: HEPATITIS C
     Dosage: 80 MCG QW SUBCUTANEOUS
     Route: 058
     Dates: start: 20060119, end: 20060315
  2. REBETOL [Suspect]
     Indication: HEPATITIS C
     Dosage: 400 MG ORAL
     Route: 048
     Dates: start: 20060119
  3. PAXIL [Concomitant]
  4. RABEPRAZOLE SODIUM [Concomitant]

REACTIONS (1)
  - MOUTH HAEMORRHAGE [None]
